FAERS Safety Report 23437956 (Version 1)
Quarter: 2024Q1

REPORT INFORMATION
  Report Type: Spontaneous
  Country: CZ (occurrence: CZ)
  Receive Date: 20240124
  Receipt Date: 20240124
  Transmission Date: 20240409
  Serious: Yes (Other)
  Sender: FDA-Public Use
  Company Number: CZ-IPSEN Group, Research and Development-2023-14732

PATIENT
  Age: 70 Year
  Sex: Female

DRUGS (9)
  1. CABOMETYX [Suspect]
     Active Substance: CABOZANTINIB S-MALATE
     Indication: Thyroid cancer
     Dosage: UNKNOWN
     Route: 065
     Dates: start: 202211, end: 202302
  2. CABOMETYX [Suspect]
     Active Substance: CABOZANTINIB S-MALATE
     Dosage: 40 MG, QD
     Dates: start: 202309, end: 202311
  3. LEVOTHYROXINE SODIUM [Concomitant]
     Active Substance: LEVOTHYROXINE SODIUM
  4. AMLODIPINE BESYLATE\INDAPAMIDE\PERINDOPRIL ARGININE [Concomitant]
     Active Substance: AMLODIPINE BESYLATE\INDAPAMIDE\PERINDOPRIL ARGININE
  5. METOPROLOL [Concomitant]
     Active Substance: METOPROLOL
  6. CONTROLOC [Concomitant]
     Active Substance: PANTOPRAZOLE SODIUM
  7. PRADAXA [Concomitant]
     Active Substance: DABIGATRAN ETEXILATE MESYLATE
  8. VENLAFAXINE HYDROCHLORIDE [Concomitant]
     Active Substance: VENLAFAXINE HYDROCHLORIDE
  9. Vigantol [Concomitant]

REACTIONS (12)
  - Liver disorder [Recovered/Resolved]
  - Pulmonary embolism [Unknown]
  - Aphthous ulcer [Recovered/Resolved]
  - Dysphonia [Recovered/Resolved]
  - Decreased appetite [Recovered/Resolved]
  - Weight decreased [Recovered/Resolved]
  - Asthenia [Recovered/Resolved]
  - Dehydration [Recovered/Resolved]
  - Hypertension [Unknown]
  - Diarrhoea [Unknown]
  - Dysphonia [Unknown]
  - Nephropathy [Recovered/Resolved]

NARRATIVE: CASE EVENT DATE: 20230201
